FAERS Safety Report 5252610-X (Version None)
Quarter: 2007Q1

REPORT INFORMATION
  Report Type: 
  Country: None (occurrence: None)
  Receive Date: 20070301
  Receipt Date: 20070227
  Transmission Date: 20070707
  Serious: Yes (Life-Threatening, Hospitalization, Disabling)
  Sender: FDA-Public Use
  Company Number: MX-JNJFOC-20061205541

PATIENT
  Age: 57 Year
  Sex: Male

DRUGS (12)
  1. LEVOFLOXACIN [Suspect]
     Indication: NOSOCOMIAL INFECTION
     Route: 048
     Dates: start: 20061206, end: 20061207
  2. LEVOFLOXACIN [Suspect]
     Route: 051
  3. LEVOFLOXACIN [Suspect]
     Route: 042
     Dates: start: 20061208, end: 20061213
  4. CLOPIDOGREL [Concomitant]
     Indication: MYOCARDIAL INFARCTION
     Route: 048
  5. CLARITHROMYCIN [Concomitant]
     Indication: MYOCARDIAL INFARCTION
     Route: 048
  6. ENOXAPARIN SODIUM [Concomitant]
     Indication: PROPHYLAXIS
     Route: 058
  7. OMEPRAZOLE [Concomitant]
     Indication: GASTROINTESTINAL DISORDER THERAPY
     Route: 042
  8. FRUSEMIDE [Concomitant]
     Indication: CARDIAC FAILURE
     Route: 042
  9. ATORVASTATIN [Concomitant]
     Indication: MYOCARDIAL ISCHAEMIA
     Route: 048
  10. OMEPRAZOLE [Concomitant]
     Route: 048
  11. FUROSEMIDE [Concomitant]
     Indication: CARDIAC FAILURE
     Route: 048
  12. ACENOCOUMAROL [Concomitant]
     Indication: INTRACARDIAC THROMBUS
     Route: 048

REACTIONS (1)
  - ISCHAEMIC STROKE [None]
